FAERS Safety Report 13687020 (Version 3)
Quarter: 2017Q3

REPORT INFORMATION
  Report Type: Spontaneous
  Country: JP (occurrence: JP)
  Receive Date: 20170623
  Receipt Date: 20170929
  Transmission Date: 20171127
  Serious: Yes (Death, Hospitalization, Other)
  Sender: FDA-Public Use
  Company Number: JP-AMGEN-JPNSP2017095408

PATIENT
  Age: 49 Year
  Sex: Male

DRUGS (33)
  1. ALOSENN [Concomitant]
     Active Substance: SENNA LEAF
  2. EFIENT [Concomitant]
     Active Substance: PRASUGREL HYDROCHLORIDE
  3. ANCARON [Concomitant]
     Active Substance: AMIODARONE HYDROCHLORIDE
  4. XYLITOL [Concomitant]
     Active Substance: XYLITOL
     Dosage: 10 MG, UNK
  5. PARSABIV [Suspect]
     Active Substance: ETELCALCETIDE HYDROCHLORIDE
     Dosage: 5 MG, 3 TIMES/WK
     Route: 042
     Dates: start: 20170329, end: 20170329
  6. PARSABIV [Suspect]
     Active Substance: ETELCALCETIDE HYDROCHLORIDE
     Dosage: 5 MG, 3 TIMES/WK
     Route: 042
     Dates: start: 20170331, end: 20170331
  7. THYRADIN S [Concomitant]
     Active Substance: LEVOTHYROXINE SODIUM
  8. FULSTAN [Concomitant]
     Dosage: 0.3 UNK, QD
  9. TRAZENTA [Concomitant]
     Active Substance: LINAGLIPTIN
  10. L CARTIN FF [Concomitant]
     Active Substance: LEVOCARNITINE
  11. P-TOL [Concomitant]
     Active Substance: FERRIC OXYHYDROXIDE
  12. TAKECAB [Concomitant]
     Active Substance: VONOPRAZAN FUMURATE
  13. BAYASPIRIN [Concomitant]
     Active Substance: ASPIRIN
  14. TENELIA [Concomitant]
     Active Substance: TENELIGLIPTIN
  15. CARVEDILOL. [Concomitant]
     Active Substance: CARVEDILOL
  16. MEXITIL [Concomitant]
     Active Substance: MEXILETINE HYDROCHLORIDE
  17. HEPARIN [Concomitant]
     Active Substance: HEPARIN SODIUM
     Dosage: UNK
     Dates: start: 20170217, end: 20170410
  18. PARSABIV [Suspect]
     Active Substance: ETELCALCETIDE HYDROCHLORIDE
     Dosage: 5 MG, 3 TIMES/WK
     Route: 042
     Dates: start: 20170317, end: 20170317
  19. PARSABIV [Suspect]
     Active Substance: ETELCALCETIDE HYDROCHLORIDE
     Dosage: 5 MG, 3 TIMES/WK
     Route: 042
     Dates: start: 20170327, end: 20170327
  20. PARSABIV [Suspect]
     Active Substance: ETELCALCETIDE HYDROCHLORIDE
     Dosage: 5 MG, 3 TIMES/WK
     Route: 042
     Dates: start: 20170403, end: 20170403
  21. CALCICOL [Concomitant]
     Active Substance: CALCIUM GLUCONATE
  22. PARSABIV [Suspect]
     Active Substance: ETELCALCETIDE HYDROCHLORIDE
     Dosage: 5 MG, 3 TIMES/WK
     Route: 042
     Dates: start: 20170320, end: 20170320
  23. NESP [Concomitant]
     Active Substance: DARBEPOETIN ALFA
     Indication: PRODUCT USED FOR UNKNOWN INDICATION
     Dosage: UNK
     Route: 065
  24. PENLES [Concomitant]
     Active Substance: LIDOCAINE
  25. OXAROL [Concomitant]
     Active Substance: MAXACALCITOL
     Dosage: 5 MUG, UNK 3 TIMES
     Route: 042
  26. PARSABIV [Suspect]
     Active Substance: ETELCALCETIDE HYDROCHLORIDE
     Dosage: 5 MG, 3 TIMES/WK
     Route: 042
     Dates: start: 20170315, end: 20170315
  27. PARSABIV [Suspect]
     Active Substance: ETELCALCETIDE HYDROCHLORIDE
     Dosage: 5 MG, 3 TIMES/WK
     Route: 042
     Dates: start: 20170324, end: 20170324
  28. CALTAN [Concomitant]
     Active Substance: CALCIUM CARBONATE
  29. VITAMIN K [Concomitant]
     Active Substance: PHYTONADIONE
  30. PARSABIV [Suspect]
     Active Substance: ETELCALCETIDE HYDROCHLORIDE
     Indication: HYPERPARATHYROIDISM SECONDARY
     Dosage: 5 MG, 3 TIMES/WK
     Route: 042
     Dates: start: 20170313, end: 20170313
  31. PARSABIV [Suspect]
     Active Substance: ETELCALCETIDE HYDROCHLORIDE
     Dosage: 5 MG, 3 TIMES/WK
     Route: 042
     Dates: start: 20170322, end: 20170322
  32. REBAMIPIDE [Concomitant]
     Active Substance: REBAMIPIDE
  33. MIYA-BM [Concomitant]
     Active Substance: CLOSTRIDIUM BUTYRICUM SPORES STRAIN M-55

REACTIONS (5)
  - Blood pressure decreased [Fatal]
  - Constipation [Unknown]
  - Oropharyngeal pain [Unknown]
  - Cardiac failure [Fatal]
  - Epistaxis [Unknown]

NARRATIVE: CASE EVENT DATE: 201703
